FAERS Safety Report 22664521 (Version 1)
Quarter: 2023Q2

REPORT INFORMATION
  Report Type: Spontaneous
  Country: US (occurrence: None)
  Receive Date: 20230630
  Receipt Date: 20230630
  Transmission Date: 20230722
  Serious: Yes (Life-Threatening, Hospitalization)
  Sender: FDA-Public Use
  Company Number: None

PATIENT
  Age: 85 Year
  Sex: Female
  Weight: 69.3 kg

DRUGS (4)
  1. DULOXETINE [Suspect]
     Active Substance: DULOXETINE
     Indication: Arthritis
     Dates: start: 20230530, end: 20230601
  2. CALCIUM [Concomitant]
     Active Substance: CALCIUM
  3. FISH OIL [Concomitant]
     Active Substance: FISH OIL
  4. ASPIRIN [Concomitant]
     Active Substance: ASPIRIN

REACTIONS (9)
  - Headache [None]
  - Asthenia [None]
  - Dizziness [None]
  - Disturbance in attention [None]
  - Decreased appetite [None]
  - Vision blurred [None]
  - Hyponatraemia [None]
  - Presyncope [None]
  - Brief resolved unexplained event [None]

NARRATIVE: CASE EVENT DATE: 20230603
